FAERS Safety Report 17257561 (Version 1)
Quarter: 2020Q1

REPORT INFORMATION
  Report Type: Spontaneous
  Country: LT (occurrence: LT)
  Receive Date: 20200110
  Receipt Date: 20200110
  Transmission Date: 20200409
  Serious: Yes (Other)
  Sender: FDA-Public Use
  Company Number: LT-MYLANLABS-2020M1002197

PATIENT
  Age: 10 Year
  Sex: Female
  Weight: 28 kg

DRUGS (1)
  1. DRIPTANE 5 MG TABLET?S [Suspect]
     Active Substance: OXYBUTYNIN
     Indication: URETHRAL STENOSIS
     Dosage: 5 MILLIGRAM
     Route: 048
     Dates: start: 20190928, end: 20190929

REACTIONS (3)
  - Loss of consciousness [Recovered/Resolved]
  - Respiratory arrest [Recovered/Resolved]
  - Seizure [Recovered/Resolved]

NARRATIVE: CASE EVENT DATE: 20190929
